FAERS Safety Report 5876880-X (Version None)
Quarter: 2008Q3

REPORT INFORMATION
  Report Type: 
  Country: None (occurrence: None)
  Receive Date: 20080910
  Receipt Date: 20080902
  Transmission Date: 20090109
  Serious: Yes (Other)
  Sender: FDA-Public Use
  Company Number: CN-ASTRAZENECA-2008AP06899

PATIENT
  Age: 40 Year
  Sex: Female

DRUGS (2)
  1. NAROPIN [Suspect]
     Indication: ANAESTHESIA
     Route: 008
     Dates: start: 20080901, end: 20080901
  2. NAROPIN [Suspect]
     Route: 008
     Dates: start: 20080901, end: 20080901

REACTIONS (3)
  - DYSPHONIA [None]
  - DYSPNOEA [None]
  - ERYTHEMA [None]
